FAERS Safety Report 4952253-9 (Version None)
Quarter: 2006Q1

REPORT INFORMATION
  Report Type: 
  Country: None (occurrence: None)
  Receive Date: 20060315
  Receipt Date: 20060228
  Transmission Date: 20060701
  Serious: Yes (Death)
  Sender: FDA-Public Use
  Company Number: WSDF_00119

PATIENT
  Age: 85 Year
  Sex: Male

DRUGS (2)
  1. WINRHO SDF [Suspect]
     Indication: IDIOPATHIC THROMBOCYTOPENIC PURPURA
     Dosage: 50 MCG/KG ONCE IV
     Route: 042
     Dates: start: 19990727, end: 19990727
  2. PREDNISONE [Concomitant]

REACTIONS (17)
  - ACUTE RESPIRATORY DISTRESS SYNDROME [None]
  - ATRIAL FIBRILLATION [None]
  - ATRIOVENTRICULAR BLOCK [None]
  - BACK PAIN [None]
  - CARDIAC ARREST [None]
  - CARDIAC FAILURE [None]
  - CHILLS [None]
  - DISSEMINATED INTRAVASCULAR COAGULATION [None]
  - DRUG HYPERSENSITIVITY [None]
  - MULTI-ORGAN FAILURE [None]
  - PAIN IN EXTREMITY [None]
  - PULMONARY EMBOLISM [None]
  - PULMONARY OEDEMA [None]
  - RENAL FAILURE [None]
  - RENAL TUBULAR NECROSIS [None]
  - RESPIRATORY FAILURE [None]
  - THERAPY NON-RESPONDER [None]
